FAERS Safety Report 4698960-7 (Version None)
Quarter: 2005Q2

REPORT INFORMATION
  Report Type: 
  Country: None (occurrence: None)
  Receive Date: 20050624
  Receipt Date: 20050613
  Transmission Date: 20051028
  Serious: Yes (Hospitalization)
  Sender: FDA-Public Use
  Company Number: DE-NOVOPROD-244747

PATIENT
  Age: 14 Year
  Sex: Female
  Weight: 67 kg

DRUGS (2)
  1. LEVEMIR [Suspect]
     Indication: DIABETES MELLITUS INSULIN-DEPENDENT
     Dosage: 38 IE, QD
     Route: 058
     Dates: start: 20050201
  2. LEVOTHYROXINE [Concomitant]
     Dosage: 125 UG, QD
     Route: 048
     Dates: start: 20010101

REACTIONS (2)
  - ABDOMINAL PAIN [None]
  - PANCREATITIS ACUTE [None]
